FAERS Safety Report 7475841-7 (Version None)
Quarter: 2011Q2

REPORT INFORMATION
  Report Type: 
  Country: None (occurrence: None)
  Receive Date: 20110512
  Receipt Date: 20110506
  Transmission Date: 20111010
  Serious: Yes (Death, Hospitalization)
  Sender: FDA-Public Use
  Company Number: NO-SANOFI-AVENTIS-2011SA026991

PATIENT
  Age: 57 Year
  Sex: Female

DRUGS (3)
  1. TAXOTERE [Suspect]
     Route: 042
     Dates: start: 20101201, end: 20101201
  2. TAXOTERE [Suspect]
     Indication: BREAST CANCER
     Route: 042
     Dates: start: 20101110, end: 20101110
  3. TAXOTERE [Suspect]
     Route: 042
     Dates: start: 20110112, end: 20110112

REACTIONS (5)
  - FEBRILE NEUTROPENIA [None]
  - DYSPNOEA [None]
  - CLAVICLE FRACTURE [None]
  - HYPOXIA [None]
  - C-REACTIVE PROTEIN INCREASED [None]
